FAERS Safety Report 6061779-9 (Version None)
Quarter: 2009Q1

REPORT INFORMATION
  Report Type: 
  Country: None (occurrence: None)
  Receive Date: 20090202
  Receipt Date: 20090126
  Transmission Date: 20090719
  Serious: Yes (Other)
  Sender: FDA-Public Use
  Company Number: US-PFIZER INC-2009160847

PATIENT
  Sex: Female
  Weight: 63.492 kg

DRUGS (4)
  1. LIPITOR [Suspect]
     Indication: BLOOD CHOLESTEROL INCREASED
     Dates: start: 20000101
  2. EVISTA [Concomitant]
  3. CALCIUM [Concomitant]
  4. IRON [Concomitant]

REACTIONS (2)
  - PANCREATITIS CHRONIC [None]
  - WEIGHT DECREASED [None]
